FAERS Safety Report 18635876 (Version 5)
Quarter: 2021Q2

REPORT INFORMATION
  Report Type: Report from Study
  Country: HU (occurrence: HU)
  Receive Date: 20201218
  Receipt Date: 20210608
  Transmission Date: 20210717
  Serious: Yes (Death, Hospitalization, Other)
  Sender: FDA-Public Use
  Company Number: NVSC2020HU336148

PATIENT
  Age: 78 Year
  Sex: Male

DRUGS (8)
  1. SOLU?MEDROL [Concomitant]
     Active Substance: METHYLPREDNISOLONE SODIUM SUCCINATE
     Indication: PRODUCT USED FOR UNKNOWN INDICATION
     Dosage: 150 MG, BID (2X)
     Route: 065
  2. LEVOFLOXACIN. [Suspect]
     Active Substance: LEVOFLOXACIN
     Indication: COVID-19
     Dosage: 500 MG, QD (1X)
     Route: 065
     Dates: start: 20201106
  3. SOLU?MEDROL [Concomitant]
     Active Substance: METHYLPREDNISOLONE SODIUM SUCCINATE
     Dosage: 80 MG BID (2X)
     Route: 042
  4. AZI SANDOZ [Suspect]
     Active Substance: AZITHROMYCIN MONOHYDRATE
     Indication: COVID-19
     Dosage: 500 MG, QD (1X)
     Route: 065
     Dates: start: 20201106
  5. DEXAMETHASONE. [Suspect]
     Active Substance: DEXAMETHASONE
     Indication: COVID-19
     Dosage: 8 MG, QD (1X)
     Route: 065
     Dates: start: 20201106
  6. ULTIBRO BREEZHALER [Suspect]
     Active Substance: GLYCOPYRRONIUM\INDACATEROL
     Indication: CHRONIC OBSTRUCTIVE PULMONARY DISEASE
     Dosage: UNK (1X1 IN THE MORNING)
     Route: 065
     Dates: start: 20201106
  7. AMLODIPINE [Suspect]
     Active Substance: AMLODIPINE BESYLATE
     Indication: PRODUCT USED FOR UNKNOWN INDICATION
     Dosage: 5 MG, QD (IN THE MORNING)
     Route: 065
  8. ULTIBRO BREEZHALER [Suspect]
     Active Substance: GLYCOPYRRONIUM\INDACATEROL
     Dosage: UNK
     Route: 065
     Dates: start: 20201208

REACTIONS (22)
  - Ageusia [Fatal]
  - Blood sodium increased [Unknown]
  - Fatigue [Fatal]
  - Pneumonia viral [Fatal]
  - Pyrexia [Fatal]
  - Anosmia [Fatal]
  - Hypoxia [Fatal]
  - Dementia [Unknown]
  - Hypertension [Unknown]
  - Intellectual disability [Unknown]
  - Panic disorder [Unknown]
  - Respiratory failure [Fatal]
  - Glomerular filtration rate decreased [Unknown]
  - COVID-19 [Fatal]
  - Acute respiratory distress syndrome [Fatal]
  - Behaviour disorder [Unknown]
  - Cough [Fatal]
  - Oropharyngeal pain [Fatal]
  - Dyspnoea [Fatal]
  - Hyperventilation [Fatal]
  - Asthenia [Fatal]
  - Anxiety [Unknown]

NARRATIVE: CASE EVENT DATE: 2020
